FAERS Safety Report 6780069-X (Version None)
Quarter: 2010Q2

REPORT INFORMATION
  Report Type: 
  Country: None (occurrence: None)
  Receive Date: 20100618
  Receipt Date: 20100608
  Transmission Date: 20101027
  Serious: Yes (Other)
  Sender: FDA-Public Use
  Company Number: US-PFIZER INC-2010073352

PATIENT
  Sex: Female

DRUGS (13)
  1. XALATAN [Suspect]
     Indication: GLAUCOMA
     Dosage: 1DROP, ONCE DAILY IN EACH EYE
     Route: 047
     Dates: start: 20060401
  2. HYDRALAZINE [Concomitant]
     Dosage: 25MG, UNK
  3. NORVASC [Concomitant]
     Dosage: 10MG, UNK
  4. LABETALOL [Concomitant]
     Dosage: 100MG, UNK
  5. LEVOTHYROXINE [Concomitant]
     Dosage: 75UG, UNK
  6. LISINOPRIL [Concomitant]
     Dosage: 10MG, UNK
  7. COLACE [Concomitant]
     Dosage: 110MG, UNK
  8. MAGNESIUM OXIDE [Concomitant]
     Dosage: 400MG, UNK
  9. NIFEREX [Concomitant]
     Dosage: 150MG, UNK
  10. MONTELUKAST [Concomitant]
     Dosage: 10MG, UNK
  11. DARIFENACIN [Concomitant]
     Dosage: 7.5MG, UNK
  12. PROTONIX [Concomitant]
     Dosage: 40MG, UNK
  13. LIPITOR [Concomitant]
     Dosage: 10MG, UNK

REACTIONS (7)
  - CARDIAC DISORDER [None]
  - CONSTIPATION [None]
  - EYE IRRITATION [None]
  - EYE PAIN [None]
  - FOREIGN BODY SENSATION IN EYES [None]
  - LACRIMATION INCREASED [None]
  - OCULAR HYPERAEMIA [None]
